FAERS Safety Report 7264558-X (Version None)
Quarter: 2011Q1

REPORT INFORMATION
  Report Type: 
  Country: None (occurrence: None)
  Receive Date: 20110131
  Receipt Date: 20110125
  Transmission Date: 20110831
  Serious: Yes (Other)
  Sender: FDA-Public Use
  Company Number: US-PFIZER INC-2010081498

PATIENT
  Sex: Female
  Weight: 36.3 kg

DRUGS (8)
  1. CYMBALTA [Concomitant]
     Dosage: 30 MG, UNK
  2. LYRICA [Suspect]
     Indication: FIBROMYALGIA
     Dosage: 200 MG NIGHTLY AND 100 MG EACH MORNING
     Dates: start: 20090501
  3. EFFEXOR [Suspect]
     Dosage: 37.5 MG, 3X/DAY
     Dates: start: 20100501
  4. EFFEXOR [Suspect]
     Dosage: 150 MG/DAY
     Dates: start: 20100101, end: 20100101
  5. LYRICA [Suspect]
     Dosage: 200MG/DAY
     Dates: end: 20100630
  6. WELLBUTRIN SR [Concomitant]
     Dosage: UNK
  7. PAXIL [Concomitant]
     Dosage: 40 MG, UNK
  8. ZOLOFT [Concomitant]
     Dosage: UNK

REACTIONS (2)
  - WEIGHT INCREASED [None]
  - TINNITUS [None]
